FAERS Safety Report 7384416-X (Version None)
Quarter: 2011Q1

REPORT INFORMATION
  Report Type: 
  Country: None (occurrence: None)
  Receive Date: 20110330
  Receipt Date: 20110323
  Transmission Date: 20110831
  Serious: Yes (Hospitalization, Other)
  Sender: FDA-Public Use
  Company Number: FR-BRISTOL-MYERS SQUIBB COMPANY-15435316

PATIENT
  Age: 37 Year
  Sex: Female

DRUGS (3)
  1. ORENCIA [Suspect]
     Indication: PSORIATIC ARTHROPATHY
     Dosage: INF DATES-28APR,(MID)MAY10,28MAY10,25JUN10,02AUG10,30AUG10,24SEP10,20OCT10,14MAR11 INF-11
     Route: 042
     Dates: start: 20100428
  2. HUMIRA [Suspect]
     Indication: PSORIATIC ARTHROPATHY
     Dosage: ALSO TAKEN FROM SEP2009-FEB10
     Route: 058
     Dates: start: 20091023, end: 20100225
  3. ENBREL [Suspect]
     Indication: PSORIATIC ARTHROPATHY
     Route: 058
     Dates: start: 20100225, end: 20100325

REACTIONS (6)
  - SCLERITIS [None]
  - PSORIASIS [None]
  - INFLUENZA LIKE ILLNESS [None]
  - DIARRHOEA [None]
  - BACK PAIN [None]
  - ABDOMINAL PAIN [None]
